FAERS Safety Report 5961852-7 (Version None)
Quarter: 2008Q4

REPORT INFORMATION
  Report Type: 
  Country: None (occurrence: None)
  Receive Date: 20081121
  Receipt Date: 20080416
  Transmission Date: 20090506
  Serious: No
  Sender: FDA-Public Use
  Company Number: US-BRISTOL-MYERS SQUIBB COMPANY-14133748

PATIENT
  Age: 41 Year
  Sex: Male

DRUGS (1)
  1. AVALIDE [Suspect]
     Indication: BLOOD PRESSURE INCREASED
     Dosage: 1 DOSAGE FORM = 300/12.5(UNITS NOT SPECIFIED)
     Route: 048
     Dates: start: 20060901, end: 20061001

REACTIONS (1)
  - ERECTILE DYSFUNCTION [None]
